FAERS Safety Report 7930370-9 (Version None)
Quarter: 2011Q4

REPORT INFORMATION
  Report Type: 
  Country: None (occurrence: None)
  Receive Date: 20111117
  Receipt Date: 20111117
  Transmission Date: 20120403
  Serious: No
  Sender: FDA-Public Use
  Company Number: None

PATIENT
  Sex: Male
  Weight: 108.8633 kg

DRUGS (1)
  1. HUMIRA [Suspect]
     Indication: PSORIASIS
     Dosage: 40MG QWEEK SUBCU
     Route: 058
     Dates: start: 20110601, end: 20110801

REACTIONS (2)
  - DYSKINESIA [None]
  - TREMOR [None]
